FAERS Safety Report 12982432 (Version 1)
Quarter: 2016Q4

REPORT INFORMATION
  Report Type: Spontaneous
  Country: US (occurrence: US)
  Receive Date: 20161128
  Receipt Date: 20161128
  Transmission Date: 20170207
  Serious: Yes (Disabling)
  Sender: FDA-Public Use
  Company Number: None

PATIENT
  Age: 39 Year
  Sex: Female
  Weight: 76.73 kg

DRUGS (3)
  1. PURE SYNERGY [Concomitant]
  2. MIRENA [Suspect]
     Active Substance: LEVONORGESTREL
  3. IBUPROFEN. [Concomitant]
     Active Substance: IBUPROFEN

REACTIONS (5)
  - Headache [None]
  - Muscle spasms [None]
  - Dizziness [None]
  - Mood swings [None]
  - Chest pain [None]

NARRATIVE: CASE EVENT DATE: 20161123
